FAERS Safety Report 9370305 (Version 1)
Quarter: 2013Q2

REPORT INFORMATION
  Report Type: Spontaneous
  Country: US (occurrence: US)
  Receive Date: 20130626
  Receipt Date: 20130626
  Transmission Date: 20140414
  Serious: Yes (Death, Life-Threatening)
  Sender: FDA-Public Use
  Company Number: US-JNJFOC-20130617542

PATIENT
  Sex: 0

DRUGS (2)
  1. IBUPROFEN [Suspect]
     Indication: PRODUCT USED FOR UNKNOWN INDICATION
     Route: 065
  2. DICLOFENAC [Suspect]
     Indication: PRODUCT USED FOR UNKNOWN INDICATION
     Route: 065

REACTIONS (3)
  - Death [Fatal]
  - Myocardial infarction [Unknown]
  - Cardiac failure [Unknown]
